FAERS Safety Report 15051270 (Version 1)
Quarter: 2018Q2

REPORT INFORMATION
  Report Type: Spontaneous
  Country: US (occurrence: US)
  Receive Date: 20180622
  Receipt Date: 20180622
  Transmission Date: 20180711
  Serious: No
  Sender: FDA-Public Use
  Company Number: US-ASTELLAS-2017US026670

PATIENT
  Sex: Female

DRUGS (1)
  1. VESICARE [Suspect]
     Active Substance: SOLIFENACIN SUCCINATE
     Indication: HYPERTONIC BLADDER
     Route: 065
     Dates: start: 201706, end: 20170630

REACTIONS (6)
  - Micturition urgency [Unknown]
  - Dry mouth [Unknown]
  - Urinary incontinence [Unknown]
  - Muscle spasms [Unknown]
  - Constipation [Unknown]
  - Wrong technique in product usage process [Unknown]
